FAERS Safety Report 25688119 (Version 1)
Quarter: 2025Q3

REPORT INFORMATION
  Report Type: Report from Study
  Country: US (occurrence: US)
  Receive Date: 20250818
  Receipt Date: 20250818
  Transmission Date: 20251021
  Serious: Yes (Hospitalization)
  Sender: COLLEGIUM PHARMACEUTICAL
  Company Number: US-COLLEGIUM PHARMACEUTICAL, INC.-20250802444

PATIENT

DRUGS (4)
  1. XTAMPZA ER [Suspect]
     Active Substance: OXYCODONE
     Indication: Product used for unknown indication
     Route: 065
  2. ORGOVYX [Suspect]
     Active Substance: RELUGOLIX
     Indication: Prostate cancer
     Route: 048
     Dates: start: 20240616, end: 20240616
  3. ORGOVYX [Suspect]
     Active Substance: RELUGOLIX
     Route: 048
     Dates: start: 20240617, end: 2024
  4. XTANDI [Concomitant]
     Active Substance: ENZALUTAMIDE
     Indication: Product used for unknown indication
     Route: 065

REACTIONS (12)
  - Hospitalisation [Recovered/Resolved]
  - Bladder pain [Unknown]
  - Weight decreased [Unknown]
  - Urinary incontinence [Unknown]
  - Sleep disorder [Unknown]
  - Malaise [Unknown]
  - Illness [Unknown]
  - Decreased appetite [Unknown]
  - Anxiety [Unknown]
  - Vomiting [Unknown]
  - Abdominal pain upper [Unknown]
  - Product dose omission issue [Unknown]

NARRATIVE: CASE EVENT DATE: 20240201
